FAERS Safety Report 5263008-2 (Version None)
Quarter: 2007Q1

REPORT INFORMATION
  Report Type: 
  Country: None (occurrence: None)
  Receive Date: 20070308
  Receipt Date: 20070227
  Transmission Date: 20070707
  Serious: Yes (Life-Threatening, Hospitalization)
  Sender: FDA-Public Use
  Company Number: TPG2006A00623

PATIENT
  Age: 63 Year
  Sex: Female

DRUGS (5)
  1. ACTOS [Suspect]
     Indication: DIABETES MELLITUS NON-INSULIN-DEPENDENT
     Dosage: 45 MG (45 MG, 1 IN 1 D) PER ORAL
     Route: 048
     Dates: start: 20060721, end: 20061216
  2. METOHEXAL (METOPROLOL TARTRATE) [Concomitant]
  3. METFORMIN HCL [Concomitant]
  4. LISINOPRIL [Concomitant]
  5. GLIMEPIRIDE [Concomitant]

REACTIONS (5)
  - AMNESIA [None]
  - DIPLOPIA [None]
  - DIZZINESS [None]
  - EPILEPSY [None]
  - GRAND MAL CONVULSION [None]
